FAERS Safety Report 6703367-4 (Version None)
Quarter: 2010Q2

REPORT INFORMATION
  Report Type: 
  Country: None (occurrence: None)
  Receive Date: 20100430
  Receipt Date: 20100422
  Transmission Date: 20101027
  Serious: Yes (Other)
  Sender: FDA-Public Use
  Company Number: JP-ASTRAZENECA-2010SE18213

PATIENT
  Age: 67 Year
  Sex: Female

DRUGS (5)
  1. ACCOLATE [Suspect]
     Indication: ASTHMA
     Route: 048
     Dates: start: 20081001
  2. PULMICORT [Concomitant]
     Indication: ASTHMA
     Route: 055
  3. SEREVENT [Concomitant]
     Indication: ASTHMA
  4. FOSAMAC [Concomitant]
     Indication: OSTEOPOROSIS
     Route: 048
  5. ONEALFA [Concomitant]
     Indication: OSTEOPOROSIS
     Route: 048

REACTIONS (1)
  - HEPATITIS B [None]
